FAERS Safety Report 8617395-5 (Version None)
Quarter: 2012Q3

REPORT INFORMATION
  Report Type: 
  Country: None (occurrence: None)
  Receive Date: 20120823
  Receipt Date: 20120808
  Transmission Date: 20120928
  Serious: Yes (Hospitalization, Other)
  Sender: FDA-Public Use
  Company Number: JP-009507513-2012SP036333

PATIENT

DRUGS (20)
  1. NORVASC [Concomitant]
     Route: 048
  2. TAMSULOSIN HYDROCHLORIDE [Concomitant]
     Route: 048
  3. REBETOL [Suspect]
     Dosage: CUMULATIVE DOSE: 8400 MG
     Route: 048
     Dates: start: 20120511, end: 20120706
  4. TELAVIC [Suspect]
     Indication: HEPATITIS C
     Dosage: CUMULATIVE DOSE: 21000 MG
     Route: 048
     Dates: start: 20120417, end: 20120524
  5. TELAVIC [Suspect]
     Dosage: CUMULATIVE DOSE: 21000 MG
     Route: 048
     Dates: start: 20120525, end: 20120615
  6. RABEPRAZOLE SODIUM [Concomitant]
     Indication: GASTROOESOPHAGEAL REFLUX DISEASE
     Dosage: FORMULATION: POR
     Route: 048
  7. CLARITIN REDITABS [Concomitant]
     Indication: PROPHYLAXIS
     Dosage: 10 MG, QD
     Route: 048
  8. LIVALO [Concomitant]
     Indication: HYPERLIPIDAEMIA
     Dosage: FORMULATION: POR
     Route: 048
  9. CLARITIN REDITABS [Concomitant]
     Route: 048
  10. FEROTYM [Concomitant]
     Route: 048
  11. EPADEL S [Concomitant]
     Indication: HYPERLIPIDAEMIA
     Route: 048
  12. PEG-INTRON [Suspect]
     Indication: HEPATITIS C
     Dosage: 1.5MCG/KG/WEEK
     Route: 058
     Dates: start: 20120417, end: 20120629
  13. REBETOL [Suspect]
     Indication: HEPATITIS C
     Dosage: CUMULATIVE DOSE: 8400 MG
     Route: 048
     Dates: start: 20120417, end: 20120510
  14. NORVASC [Concomitant]
     Indication: HYPERTENSION
     Dosage: FORMULATION: POR  AMLODIPINE BESILATE
     Route: 048
  15. FEROTYM [Concomitant]
     Indication: IRON DEFICIENCY ANAEMIA
     Dosage: FORMULATION: POR
     Route: 048
  16. EPADEL [Concomitant]
     Indication: HYPERLIPIDAEMIA
     Dosage: FORMULATION: POR
     Route: 048
  17. RABEPRAZOLE SODIUM [Concomitant]
     Route: 048
  18. TELAVIC [Suspect]
     Dosage: CUMULATIVE DOSE: 21000 MG
     Route: 048
     Dates: start: 20120622, end: 20120706
  19. TAMSULOSIN HYDROCHLORIDE [Concomitant]
     Indication: HYPERTENSION
     Dosage: FORMULATION: POR, TRADE NAME: UNKNOWN
     Route: 048
  20. LIVALO [Concomitant]
     Route: 048

REACTIONS (3)
  - ANAEMIA [None]
  - DRUG ERUPTION [None]
  - STEVENS-JOHNSON SYNDROME [None]
